FAERS Safety Report 9014185 (Version 1)
Quarter: 2013Q1

REPORT INFORMATION
  Report Type: Spontaneous
  Country: JP (occurrence: JP)
  Receive Date: 20130115
  Receipt Date: 20130115
  Transmission Date: 20140127
  Serious: Yes (Hospitalization, Other)
  Sender: FDA-Public Use
  Company Number: PHHY2013JP002540

PATIENT
  Age: 59 Year
  Sex: Male

DRUGS (3)
  1. CISPLATIN [Suspect]
     Indication: NASOPHARYNGEAL CANCER
     Dosage: 50 MG/M2, UNK
  2. 5-FLUOROURACIL [Suspect]
     Indication: NASOPHARYNGEAL CANCER
     Dosage: 700 MG/M2, ON DAYS 1-5
  3. RADIOTHERAPY [Suspect]
     Indication: NASOPHARYNGEAL CANCER
     Dosage: 64.8 GY, GY IN 36 FRACTIONS

REACTIONS (4)
  - Dropped head syndrome [Unknown]
  - Muscle atrophy [Unknown]
  - Posture abnormal [Unknown]
  - Mucosal inflammation [Unknown]
